FAERS Safety Report 22100213 (Version 1)
Quarter: 2023Q1

REPORT INFORMATION
  Report Type: Spontaneous
  Country: US (occurrence: US)
  Receive Date: 20230315
  Receipt Date: 20230315
  Transmission Date: 20230418
  Serious: Yes (Hospitalization, Other)
  Sender: FDA-Public Use
  Company Number: US-JAZZ PHARMACEUTICALS-2023-US-005797

PATIENT
  Age: 6 Year
  Sex: Female

DRUGS (1)
  1. XYREM [Suspect]
     Active Substance: SODIUM OXYBATE
     Indication: Product used for unknown indication
     Dosage: UNK
     Route: 048

REACTIONS (8)
  - Depressed level of consciousness [Recovered/Resolved]
  - Adverse drug reaction [Recovered/Resolved]
  - Gastrointestinal disorder [Recovered/Resolved]
  - Nervous system disorder [Recovered/Resolved]
  - Respiratory disorder [Recovered/Resolved]
  - X-ray abnormal [Recovered/Resolved]
  - Respiratory depression [Recovered/Resolved]
  - Extra dose administered [Unknown]
